FAERS Safety Report 7471282-7 (Version None)
Quarter: 2011Q2

REPORT INFORMATION
  Report Type: 
  Country: None (occurrence: None)
  Receive Date: 20110510
  Receipt Date: 20110505
  Transmission Date: 20111010
  Serious: Yes (Other)
  Sender: FDA-Public Use
  Company Number: US-ABBOTT-11P-163-0723967-00

PATIENT
  Sex: Female
  Weight: 78.542 kg

DRUGS (3)
  1. HUMIRA [Suspect]
     Indication: PSORIATIC ARTHROPATHY
     Dates: start: 19990101, end: 20090101
  2. UNKNOWN EYE DROPS [Concomitant]
     Indication: CORNEAL DISORDER
  3. HUMIRA [Suspect]
     Indication: PROPHYLAXIS AGAINST TRANSPLANT REJECTION
     Dates: start: 20090101

REACTIONS (5)
  - BLINDNESS [None]
  - TRANSPLANT REJECTION [None]
  - COMPLICATIONS OF TRANSPLANT SURGERY [None]
  - VISUAL IMPAIRMENT [None]
  - LACRIMATION INCREASED [None]
